FAERS Safety Report 6041615-7 (Version None)
Quarter: 2009Q1

REPORT INFORMATION
  Report Type: 
  Country: None (occurrence: None)
  Receive Date: 20090116
  Receipt Date: 20090113
  Transmission Date: 20090719
  Serious: Yes (Other)
  Sender: FDA-Public Use
  Company Number: B0554319A

PATIENT
  Sex: Female

DRUGS (3)
  1. DILATREND [Suspect]
     Indication: CARDIAC FAILURE
     Dosage: 3.125MG PER DAY
     Route: 048
     Dates: start: 20080701
  2. QUINAPRIL [Concomitant]
  3. DIURETIC [Concomitant]

REACTIONS (11)
  - ABDOMINAL PAIN [None]
  - ANAL HAEMORRHAGE [None]
  - DIARRHOEA [None]
  - FEELING HOT [None]
  - HYPERHIDROSIS [None]
  - HYPOAESTHESIA [None]
  - NAUSEA [None]
  - PAIN IN EXTREMITY [None]
  - PERIPHERAL COLDNESS [None]
  - PROCTALGIA [None]
  - SWELLING FACE [None]
